FAERS Safety Report 13281434 (Version 1)
Quarter: 2017Q1

REPORT INFORMATION
  Report Type: Spontaneous
  Country: US (occurrence: US)
  Receive Date: 20170228
  Receipt Date: 20170228
  Transmission Date: 20170428
  Serious: Yes (Other)
  Sender: FDA-Public Use
  Company Number: None

PATIENT
  Age: 27 Year
  Sex: Female
  Weight: 59.02 kg

DRUGS (4)
  1. MIRENA [Suspect]
     Active Substance: LEVONORGESTREL
     Dates: start: 20161228
  2. HUM NUTRITION (POWDERED VITAMIN MIX) [Concomitant]
  3. CODE LIVER OIL [Concomitant]
  4. MULTI VITAMIN [Concomitant]
     Active Substance: VITAMINS

REACTIONS (7)
  - Muscle spasms [None]
  - Suicidal ideation [None]
  - Affective disorder [None]
  - Depression [None]
  - Emotional disorder [None]
  - Insomnia [None]
  - Procedural pain [None]

NARRATIVE: CASE EVENT DATE: 20170121
